FAERS Safety Report 25569677 (Version 9)
Quarter: 2025Q4

REPORT INFORMATION
  Report Type: Spontaneous
  Country: US (occurrence: US)
  Receive Date: 20250717
  Receipt Date: 20251128
  Transmission Date: 20260118
  Serious: No
  Sender: UNITED THERAPEUTICS
  Company Number: US-UNITED THERAPEUTICS-UNT-2025-022409

PATIENT
  Sex: Male
  Weight: 58.957 kg

DRUGS (24)
  1. REMODULIN [Suspect]
     Active Substance: TREPROSTINIL
     Indication: Pulmonary arterial hypertension
     Dosage: 0.015 ?G/KG, [SELF-FILL WITH 2.1 ML PER CASSETTE; RATE 22 ?L PER HOUR] CONTINUING
  2. REMODULIN [Suspect]
     Active Substance: TREPROSTINIL
     Dosage: 0.019 ?G/KG, [SELF-FILL WITH 2.5 ML PER CASSETTE; RATE 28 MCL PER HOUR] , CONTINUING
  3. REMODULIN [Suspect]
     Active Substance: TREPROSTINIL
     Dosage: 0.033 ?G/KG, [SELF-FILL WITH 3 ML PER CASSETTE; RATE 48 MCL PER HOUR] , CONTINUING
  4. REMODULIN [Suspect]
     Active Substance: TREPROSTINIL
     Dosage: 0.043 ?G/KG (SELF FILL WITH 3ML PER CASSETTE; RATE 63MCL PER HOUR), CONTINUING
  5. REMODULIN [Suspect]
     Active Substance: TREPROSTINIL
     Dosage: UNK, CONTINUING
  6. REMODULIN [Suspect]
     Active Substance: TREPROSTINIL
     Indication: Pulmonary arterial hypertension
     Dosage: 0.049 ?G/KG (SELF-FILL WITH 3 ML PER CASSETTE; RATE 36 MCL PER HOUR), CONTINUING
  7. REMODULIN [Suspect]
     Active Substance: TREPROSTINIL
     Dosage: UNK, CONTINUING
  8. UPTRAVI [Suspect]
     Active Substance: SELEXIPAG
     Indication: Pulmonary arterial hypertension
     Dosage: 400 MCG
  9. AMBRISENTAN [Suspect]
     Active Substance: AMBRISENTAN
     Indication: Product used for unknown indication
     Dosage: UNK
  10. VITAMIN D3 [Concomitant]
     Active Substance: CHOLECALCIFEROL
     Indication: Product used for unknown indication
     Dosage: UNK
  11. SODIUM CHLORIDE [Concomitant]
     Active Substance: SODIUM CHLORIDE
     Indication: Product used for unknown indication
  12. KETAMINE HYDROCHLORIDE [Concomitant]
     Active Substance: KETAMINE HYDROCHLORIDE
     Indication: Product used for unknown indication
  13. LECITHIN [Concomitant]
     Active Substance: LECITHIN
     Indication: Product used for unknown indication
     Dosage: UNK
  14. TADALAFIL [Concomitant]
     Active Substance: TADALAFIL
     Indication: Product used for unknown indication
     Dosage: UNK
  15. WINREVAIR [Concomitant]
     Active Substance: SOTATERCEPT-CSRK
     Indication: Product used for unknown indication
     Dosage: UNK
  16. CLONIDINE [Concomitant]
     Active Substance: CLONIDINE
     Indication: Product used for unknown indication
     Dosage: UNK
  17. KETOPROFEN [Concomitant]
     Active Substance: KETOPROFEN
     Indication: Product used for unknown indication
     Dosage: UNK
  18. LIDOCAINE HYDROCHLORIDE [Concomitant]
     Active Substance: LIDOCAINE HYDROCHLORIDE
     Indication: Infusion site pain
  19. AMITRIPTYLINE [Concomitant]
     Active Substance: AMITRIPTYLINE
     Indication: Product used for unknown indication
     Dosage: UNK
  20. GABAPENTIN [Concomitant]
     Active Substance: GABAPENTIN
     Indication: Product used for unknown indication
     Dosage: UNK
  21. POLOXAMER [Concomitant]
     Active Substance: POLOXAMER
     Indication: Product used for unknown indication
     Dosage: UNK
  22. BIKTARVY [Concomitant]
     Active Substance: BICTEGRAVIR SODIUM\EMTRICITABINE\TENOFOVIR ALAFENAMIDE FUMARATE
     Indication: Product used for unknown indication
  23. EPLERENONE [Concomitant]
     Active Substance: EPLERENONE
     Indication: Product used for unknown indication
     Dosage: UNK
  24. ENTRESTO [Concomitant]
     Active Substance: SACUBITRIL\VALSARTAN
     Indication: Product used for unknown indication
     Dosage: UNK

REACTIONS (8)
  - Infusion site pain [Not Recovered/Not Resolved]
  - Dyspnoea exertional [Unknown]
  - Diarrhoea [Unknown]
  - Infusion site erythema [Unknown]
  - Headache [Unknown]
  - Infusion site reaction [Unknown]
  - Infusion site swelling [Not Recovered/Not Resolved]
  - Product dose omission issue [Recovered/Resolved]

NARRATIVE: CASE EVENT DATE: 20250101
